FAERS Safety Report 11107160 (Version 3)
Quarter: 2015Q2

REPORT INFORMATION
  Report Type: Spontaneous
  Country: US (occurrence: US)
  Receive Date: 20150512
  Receipt Date: 20150603
  Transmission Date: 20150821
  Serious: Yes (Hospitalization)
  Sender: FDA-Public Use
  Company Number: US-009507513-1503USA010772

PATIENT
  Age: 1 Year
  Sex: Female

DRUGS (1)
  1. VARIVAX [Suspect]
     Active Substance: VARICELLA-ZOSTER VIRUS STRAIN OKA/MERCK LIVE ANTIGEN
     Indication: PROPHYLAXIS
     Dates: start: 20150224, end: 20150224

REACTIONS (3)
  - Herpes zoster [Recovering/Resolving]
  - Tracheo-oesophageal fistula [Not Recovered/Not Resolved]
  - Food intolerance [Unknown]

NARRATIVE: CASE EVENT DATE: 20150302
